FAERS Safety Report 5984331-X (Version None)
Quarter: 2008Q4

REPORT INFORMATION
  Report Type: 
  Country: None (occurrence: None)
  Receive Date: 20081208
  Receipt Date: 20081126
  Transmission Date: 20090506
  Serious: Yes (Other)
  Sender: FDA-Public Use
  Company Number: PHHY2008BR29823

PATIENT
  Age: 6 Year
  Weight: 24 kg

DRUGS (4)
  1. TRILEPTAL [Suspect]
     Indication: EPILEPSY
     Dosage: 5 ML, BID
     Route: 048
  2. VALPROIC ACID [Suspect]
     Indication: EPILEPSY
     Dosage: 2.5 ML, Q8H
     Route: 048
  3. VALPROIC ACID [Suspect]
     Dosage: 4 ML EVERY 8 HRS
     Route: 048
     Dates: start: 20081114
  4. PHENOBARBITAL TAB [Suspect]
     Indication: EPILEPSY
     Dosage: 50 DROPS DAILY
     Route: 048

REACTIONS (4)
  - CONFUSIONAL STATE [None]
  - DISORIENTATION [None]
  - MOOD ALTERED [None]
  - SOMNOLENCE [None]
